FAERS Safety Report 5086232-0 (Version None)
Quarter: 2006Q3

REPORT INFORMATION
  Report Type: 
  Country: None (occurrence: None)
  Receive Date: 20060823
  Receipt Date: 20060818
  Transmission Date: 20061208
  Serious: Yes (Death)
  Sender: FDA-Public Use
  Company Number: US-RB-3756-2006

PATIENT
  Sex: Female

DRUGS (4)
  1. SUBOXONE [Suspect]
     Dosage: 2MG TAKEN IN THE AM AND 8 MG TAKEN IN THE PM
     Route: 060
  2. LAMOTRIGINE [Concomitant]
  3. HALOPERIDOL DECANOATE [Concomitant]
  4. QUETIAPINE FUMARATE [Concomitant]

REACTIONS (1)
  - DEATH [None]
